FAERS Safety Report 8056108-5 (Version None)
Quarter: 2012Q1

REPORT INFORMATION
  Report Type: 
  Country: None (occurrence: None)
  Receive Date: 20120119
  Receipt Date: 20120111
  Transmission Date: 20120608
  Serious: Yes (Hospitalization)
  Sender: FDA-Public Use
  Company Number: US-US-EMD SERONO, INC.-7068668

PATIENT
  Sex: Female
  Weight: 64 kg

DRUGS (3)
  1. REBIF [Suspect]
     Indication: MULTIPLE SCLEROSIS
     Route: 058
     Dates: start: 20020814, end: 20101001
  2. REBIF [Suspect]
     Route: 058
  3. UNSPECIFIED MEDICATION [Concomitant]

REACTIONS (8)
  - INJECTION SITE DISCOMFORT [None]
  - VITAMIN D DECREASED [None]
  - HEADACHE [None]
  - INJECTION SITE HAEMATOMA [None]
  - FATIGUE [None]
  - PULMONARY THROMBOSIS [None]
  - DEEP VEIN THROMBOSIS [None]
  - BLOOD CHOLESTEROL ABNORMAL [None]
